FAERS Safety Report 4654652-1 (Version None)
Quarter: 2005Q2

REPORT INFORMATION
  Report Type: 
  Country: None (occurrence: None)
  Receive Date: 20050504
  Receipt Date: 20050504
  Transmission Date: 20051028
  Serious: No
  Sender: FDA-Public Use
  Company Number: None

PATIENT
  Age: 71 Year
  Sex: Female
  Weight: 84.369 kg

DRUGS (1)
  1. DEMEROL [Suspect]
     Indication: ABDOMINAL PAIN
     Dosage: 25MG   INTRAVENOUS
     Route: 042
     Dates: start: 20050306, end: 20050306

REACTIONS (1)
  - URTICARIA [None]
